FAERS Safety Report 11915712 (Version 1)
Quarter: 2016Q1

REPORT INFORMATION
  Report Type: Spontaneous
  Country: US (occurrence: US)
  Receive Date: 20160114
  Receipt Date: 20160114
  Transmission Date: 20160526
  Serious: Yes (Other)
  Sender: FDA-Public Use
  Company Number: US-DRREDDYS-USA/USA/16/0055241

PATIENT
  Age: 76 Year
  Sex: Male

DRUGS (4)
  1. ARIPIPRAZOLE. [Suspect]
     Active Substance: ARIPIPRAZOLE
     Indication: MAJOR DEPRESSION
     Route: 065
  2. ARIPIPRAZOLE. [Suspect]
     Active Substance: ARIPIPRAZOLE
     Route: 065
  3. ARIPIPRAZOLE. [Suspect]
     Active Substance: ARIPIPRAZOLE
     Route: 065
  4. QUETIAPINE FUMARATE TABLETS [Suspect]
     Active Substance: QUETIAPINE FUMARATE
     Indication: MAJOR DEPRESSION
     Route: 065

REACTIONS (3)
  - Dementia [Unknown]
  - Tardive dyskinesia [Not Recovered/Not Resolved]
  - Depressive symptom [Unknown]
